FAERS Safety Report 4954609-7 (Version None)
Quarter: 2006Q1

REPORT INFORMATION
  Report Type: 
  Country: None (occurrence: None)
  Receive Date: 20060327
  Receipt Date: 20060313
  Transmission Date: 20060701
  Serious: Yes (Hospitalization)
  Sender: FDA-Public Use
  Company Number: FR-ROCHE-440243

PATIENT
  Age: 70 Year
  Sex: Female

DRUGS (7)
  1. RIVOTRIL [Suspect]
     Indication: DRUG USE FOR UNKNOWN INDICATION
     Route: 048
     Dates: start: 20060106, end: 20060202
  2. LAMICTAL [Suspect]
     Indication: DRUG USE FOR UNKNOWN INDICATION
     Route: 048
     Dates: start: 20060122
  3. LAMICTAL [Suspect]
     Route: 048
     Dates: start: 20060201, end: 20060202
  4. TEREBENTHINE, ESSENCE [Suspect]
     Indication: DRUG USE FOR UNKNOWN INDICATION
     Route: 048
     Dates: start: 20060131
  5. MOCLAMINE [Concomitant]
     Dosage: STRENGTH REPORTED AS 150.
     Route: 048
     Dates: start: 20050615, end: 20060202
  6. IMOVANE [Concomitant]
     Route: 048
     Dates: start: 20050101
  7. LEVOTHYROX [Concomitant]

REACTIONS (5)
  - CONJUNCTIVITIS [None]
  - DIARRHOEA [None]
  - ERYTHEMA [None]
  - TOXIC EPIDERMAL NECROLYSIS [None]
  - VULVOVAGINITIS [None]
